FAERS Safety Report 15976133 (Version 2)
Quarter: 2019Q1

REPORT INFORMATION
  Report Type: Spontaneous
  Country: US (occurrence: US)
  Receive Date: 20190218
  Receipt Date: 20190227
  Transmission Date: 20190418
  Serious: No
  Sender: FDA-Public Use
  Company Number: US-PFIZER INC-2019062254

PATIENT
  Age: 66 Year
  Sex: Female
  Weight: 56.69 kg

DRUGS (2)
  1. LYRICA [Suspect]
     Active Substance: PREGABALIN
     Indication: FIBROMYALGIA
     Dosage: 50 MG, THREE TIMES A DAY (ONE IN THE MORNING AND TWO AT NIGHT)
     Route: 048
  2. LYRICA [Suspect]
     Active Substance: PREGABALIN
     Indication: PSORIATIC ARTHROPATHY
     Dosage: 100 MG, THREE TIMES A DAY (ONE IN THE MORNING AND TWO AT NIGHT)
     Route: 048

REACTIONS (6)
  - Palpitations [Unknown]
  - Insomnia [Unknown]
  - Muscle spasms [Unknown]
  - Abdominal pain upper [Unknown]
  - Pain [Unknown]
  - Withdrawal syndrome [Unknown]
